FAERS Safety Report 9675717 (Version 1)
Quarter: 2013Q4

REPORT INFORMATION
  Report Type: Spontaneous
  Country: CH (occurrence: CH)
  Receive Date: 20131107
  Receipt Date: 20131107
  Transmission Date: 20140711
  Serious: Yes (Hospitalization)
  Sender: FDA-Public Use
  Company Number: CH-JNJFOC-20131102662

PATIENT
  Age: 62 Year
  Sex: Female
  Weight: 87 kg

DRUGS (2)
  1. XARELTO [Suspect]
     Indication: EMBOLISM VENOUS
     Route: 048
     Dates: start: 201106, end: 20130918
  2. XARELTO [Suspect]
     Indication: DEEP VEIN THROMBOSIS
     Route: 048
     Dates: start: 201106, end: 20130918

REACTIONS (2)
  - Venous thrombosis [Recovering/Resolving]
  - Drug ineffective [Recovering/Resolving]
